FAERS Safety Report 6450621-X (Version None)
Quarter: 2009Q4

REPORT INFORMATION
  Report Type: 
  Country: None (occurrence: None)
  Receive Date: 20091123
  Receipt Date: 20091109
  Transmission Date: 20100525
  Serious: Yes (Other)
  Sender: FDA-Public Use
  Company Number: US-SANOFI-AVENTIS-A03200904750

PATIENT
  Sex: Male
  Weight: 93 kg

DRUGS (8)
  1. CLOPIDOGREL BISULFATE [Suspect]
     Indication: STENT PLACEMENT
     Dosage: UNIT DOSE: 75 MG
     Route: 048
     Dates: start: 20061001
  2. CLOPIDOGREL BISULFATE [Suspect]
     Indication: CORONARY ARTERY DISEASE
     Dosage: UNIT DOSE: 75 MG
     Route: 048
     Dates: start: 20061001
  3. NEXIUM /UNK/ [Concomitant]
     Route: 065
  4. TAGAMET [Concomitant]
     Route: 065
  5. METOPROLOL TARTRATE [Concomitant]
     Route: 048
  6. ZOCOR [Concomitant]
     Route: 048
  7. AMLODIPINE [Concomitant]
     Route: 048
  8. ASPIRIN [Concomitant]
     Route: 048

REACTIONS (3)
  - ARTERIAL OCCLUSIVE DISEASE [None]
  - INTESTINAL HAEMORRHAGE [None]
  - LIMB DISCOMFORT [None]
